FAERS Safety Report 20187146 (Version 1)
Quarter: 2021Q4

REPORT INFORMATION
  Report Type: Spontaneous
  Country: US (occurrence: None)
  Receive Date: 20211214
  Receipt Date: 20211214
  Transmission Date: 20220304
  Serious: No
  Sender: FDA-Public Use
  Company Number: None

PATIENT
  Age: 57 Year
  Sex: Female
  Weight: 67.5 kg

DRUGS (6)
  1. PEPCID [Suspect]
     Active Substance: FAMOTIDINE
     Indication: Gastrooesophageal reflux disease
     Dosage: FREQUENCY : AT BEDTIME;?
     Route: 048
  2. EFFEXOR [Concomitant]
     Active Substance: VENLAFAXINE HYDROCHLORIDE
  3. ROSUVASTATIN [Concomitant]
     Active Substance: ROSUVASTATIN
  4. XANAX [Concomitant]
     Active Substance: ALPRAZOLAM
  5. OMEPRAZOLE [Concomitant]
     Active Substance: OMEPRAZOLE
  6. VITAMINS [Concomitant]
     Active Substance: VITAMINS

REACTIONS (6)
  - Anxiety [None]
  - Anger [None]
  - Irritability [None]
  - Feeling abnormal [None]
  - Paranoia [None]
  - Fatigue [None]

NARRATIVE: CASE EVENT DATE: 20211117
